FAERS Safety Report 14669680 (Version 1)
Quarter: 2018Q1

REPORT INFORMATION
  Report Type: Spontaneous
  Country: US (occurrence: US)
  Receive Date: 20180321
  Receipt Date: 20180321
  Transmission Date: 20180509
  Serious: No
  Sender: FDA-Public Use
  Company Number: None

PATIENT
  Age: 57 Year
  Sex: Female

DRUGS (1)
  1. FORTEO [Suspect]
     Active Substance: TERIPARATIDE
     Indication: OSTEOPOROSIS
     Route: 058
     Dates: start: 20180315, end: 20180316

REACTIONS (7)
  - Arthralgia [None]
  - Pain in extremity [None]
  - Dysgeusia [None]
  - Oropharyngeal pain [None]
  - Fatigue [None]
  - Headache [None]
  - Swollen tongue [None]

NARRATIVE: CASE EVENT DATE: 20180315
